FAERS Safety Report 7458351-2 (Version None)
Quarter: 2011Q2

REPORT INFORMATION
  Report Type: 
  Country: None (occurrence: None)
  Receive Date: 20110426
  Receipt Date: 20110411
  Transmission Date: 20111010
  Serious: Yes (Other)
  Sender: FDA-Public Use
  Company Number: FK201100726

PATIENT
  Age: 37 Year
  Sex: Male
  Weight: 63.6 kg

DRUGS (2)
  1. PREDNISOLONE [Suspect]
     Dosage: SEE IMAGE
     Route: 042
  2. METHYLPREDNISOLONE SODIUM SUCCINATE [Suspect]
     Indication: POLYSEROSITIS
     Dosage: 0.5 GM, PULSE X 3 DAYS, INTRAVENOUS (NOT OTHERWISE SPECIFIED)
     Route: 042

REACTIONS (4)
  - DECREASED APPETITE [None]
  - THROMBOTIC MICROANGIOPATHY [None]
  - HAEMODIALYSIS [None]
  - LETHARGY [None]
